FAERS Safety Report 7619425 (Version 7)
Quarter: 2018Q4

REPORT INFORMATION
  Report Type: Report from Study
  Country: DE (occurrence: DE)
  Receive Date: 20101006
  Receipt Date: 20180814
  Transmission Date: 20190205
  Serious: Yes (Congenital Anomaly, Other)
  Sender: FDA-Public Use
  Company Number: DE-GILEAD-2010-0032307

PATIENT
  Age: 0 Day
  Sex: Male
  Weight: 1.6 kg

DRUGS (5)
  1. ZIDOVUDINE/LAMIVUDINE/ABACAVIR SULFATE [Suspect]
     Active Substance: ABACAVIR\LAMIVUDINE\ZIDOVUDINE
     Indication: HIV INFECTION
     Dosage: 300-150-300MG, BID
     Route: 064
     Dates: start: 20091222, end: 20100810
  2. NORVIR [Suspect]
     Active Substance: RITONAVIR
     Indication: HIV INFECTION
     Dosage: 100 MG, BID
     Route: 064
     Dates: start: 20091222, end: 20100810
  3. ISENTRESS [Suspect]
     Active Substance: RALTEGRAVIR POTASSIUM
     Indication: HIV INFECTION
     Dosage: 400 MG, BID
     Route: 064
     Dates: start: 20091222, end: 20100810
  4. TENOFOVIR DISOPROXIL FUMARATE. [Suspect]
     Active Substance: TENOFOVIR DISOPROXIL FUMARATE
     Indication: HIV INFECTION
     Dosage: 245 MG, QD
     Route: 064
     Dates: start: 20091222, end: 20100810
  5. PREZISTA [Suspect]
     Active Substance: DARUNAVIR ETHANOLATE
     Indication: HIV INFECTION
     Dosage: 600 MG, BID
     Route: 064
     Dates: start: 20091222, end: 20100810

REACTIONS (7)
  - Hemivertebra [Unknown]
  - Foetal exposure during pregnancy [Recovered/Resolved]
  - Small for dates baby [Unknown]
  - Oesophageal atresia [Unknown]
  - Premature baby [Unknown]
  - Maternal drugs affecting foetus [Unknown]
  - Spine malformation [Unknown]

NARRATIVE: CASE EVENT DATE: 20100810
